FAERS Safety Report 6550673-2 (Version None)
Quarter: 2010Q1

REPORT INFORMATION
  Report Type: 
  Country: None (occurrence: None)
  Receive Date: 20100125
  Receipt Date: 20090709
  Transmission Date: 20100710
  Serious: No
  Sender: FDA-Public Use
  Company Number: US-TYCO HEALTHCARE/MALLINCKRODT-T200901347

PATIENT
  Sex: Female
  Weight: 83.9 kg

DRUGS (8)
  1. OPTIRAY 350 [Suspect]
     Indication: COMPUTERISED TOMOGRAM THORAX
     Dosage: 100 ML, SINGLE
     Route: 042
     Dates: start: 20090629, end: 20090629
  2. CYMBALTA [Concomitant]
     Indication: DEPRESSION
     Dosage: 60 MG, QD
     Route: 048
  3. MAXZIDE [Concomitant]
     Indication: BLOOD POTASSIUM ABNORMAL
     Dosage: 75 MG, QD
     Route: 048
  4. CORGARD [Concomitant]
     Indication: HEADACHE
     Dosage: 80 MG, QD
     Route: 048
  5. LIPITOR [Concomitant]
     Indication: BLOOD CHOLESTEROL INCREASED
     Dosage: 40 MG, QD
     Route: 048
  6. TOPAMAX [Concomitant]
     Indication: DEPRESSION
     Dosage: 200 MG, QD
     Route: 048
  7. AMBIEN CR [Concomitant]
     Dosage: UNK
     Route: 048
  8. POTASSIUM [Concomitant]
     Dosage: UNK
     Route: 048

REACTIONS (3)
  - RASH ERYTHEMATOUS [None]
  - RASH PAPULAR [None]
  - RASH PRURITIC [None]
